FAERS Safety Report 10976684 (Version 2)
Quarter: 2015Q2

REPORT INFORMATION
  Report Type: Report from Study
  Country: US (occurrence: US)
  Receive Date: 20150401
  Receipt Date: 20150422
  Transmission Date: 20150821
  Serious: No
  Sender: FDA-Public Use
  Company Number: US-ELI_LILLY_AND_COMPANY-US201503006511

PATIENT
  Sex: Female

DRUGS (3)
  1. TERIPARATIDE [Suspect]
     Active Substance: TERIPARATIDE
     Indication: OSTEOPOROSIS
     Dosage: UNK
     Route: 065
     Dates: start: 20150303
  2. VICTOZA [Concomitant]
     Active Substance: LIRAGLUTIDE
  3. BONIVA [Concomitant]
     Active Substance: IBANDRONATE SODIUM

REACTIONS (3)
  - Dizziness [Unknown]
  - Injection site pain [Unknown]
  - Incorrect dose administered [Unknown]
